FAERS Safety Report 8593874-4 (Version None)
Quarter: 2012Q3

REPORT INFORMATION
  Report Type: 
  Country: None (occurrence: None)
  Receive Date: 20120814
  Receipt Date: 20120810
  Transmission Date: 20120928
  Serious: Yes (Death, Life-Threatening, Hospitalization, Other)
  Sender: FDA-Public Use
  Company Number: US-MPIJNJ-2008_04286

PATIENT
  Sex: Female
  Weight: 70.8 kg

DRUGS (7)
  1. PEGASPARGASE [Suspect]
     Indication: ACUTE LYMPHOCYTIC LEUKAEMIA
     Dosage: UNK, UNK
     Route: 030
     Dates: start: 20071025
  2. VINCRISTINE [Suspect]
     Indication: ACUTE LYMPHOCYTIC LEUKAEMIA
     Dosage: 2 MG, UNK
     Route: 042
     Dates: start: 20071023, end: 20071023
  3. DOXORUBICIN HCL [Suspect]
     Indication: ACUTE LYMPHOCYTIC LEUKAEMIA
     Dosage: 107 MG, UNK
     Route: 042
     Dates: start: 20071023, end: 20071023
  4. CYTARABINE [Suspect]
     Indication: ACUTE LYMPHOCYTIC LEUKAEMIA
     Dosage: 70 MG, UNK
     Route: 037
     Dates: start: 20050101, end: 20071023
  5. METHOTREXATE SODIUM [Suspect]
     Indication: ACUTE LYMPHOCYTIC LEUKAEMIA
     Dosage: UNK, UNK
     Dates: start: 20050101, end: 20070101
  6. VELCADE [Suspect]
     Indication: ACUTE LYMPHOCYTIC LEUKAEMIA
     Dosage: 1.3 MG/M2, UNK
     Route: 042
     Dates: start: 20071023, end: 20071023
  7. DECADRON PHOSPHATE [Suspect]
     Indication: ACUTE LYMPHOCYTIC LEUKAEMIA
     Dosage: 9 MG, UNK
     Route: 042
     Dates: start: 20071023, end: 20071023

REACTIONS (25)
  - SPLENIC INFARCTION [None]
  - ZYGOMYCOSIS [None]
  - CHILLS [None]
  - HYPOTENSION [None]
  - HEPATIC INFARCTION [None]
  - ANAPHYLACTIC REACTION [None]
  - RHABDOMYOLYSIS [None]
  - ABDOMINAL PAIN [None]
  - AORTIC THROMBOSIS [None]
  - HYPOKALAEMIA [None]
  - HEPATIC FAILURE [None]
  - HYPOPHOSPHATAEMIA [None]
  - SHOCK [None]
  - C-REACTIVE PROTEIN INCREASED [None]
  - LOSS OF CONSCIOUSNESS [None]
  - LUNG INFILTRATION [None]
  - NEUTROPENIA [None]
  - BACTERAEMIA [None]
  - MALAISE [None]
  - INFUSION RELATED REACTION [None]
  - HYPERPYREXIA [None]
  - TRANSAMINASES INCREASED [None]
  - HYPERAMMONAEMIA [None]
  - BONE PAIN [None]
  - DYSPNOEA [None]
